FAERS Safety Report 8992005 (Version 1)
Quarter: 2012Q4

REPORT INFORMATION
  Report Type: 
  Country: US (occurrence: US)
  Receive Date: 20121231
  Receipt Date: 20121231
  Transmission Date: 20130627
  Serious: Yes (Other)
  Sender: FDA-Public Use
  Company Number: CHPA2012US025480

PATIENT
  Age: 69 Year
  Sex: Male

DRUGS (1)
  1. 4 WAY FAST ACTING NASAL SPRAY [Suspect]
     Indication: HYPERSENSITIVITY
     Dosage: AS DIRECTED, PRN
     Route: 045

REACTIONS (2)
  - Gallbladder disorder [Recovered/Resolved]
  - Expired drug administered [Unknown]
